FAERS Safety Report 8623413-0 (Version None)
Quarter: 2012Q3

REPORT INFORMATION
  Report Type: 
  Country: None (occurrence: None)
  Receive Date: 20120827
  Receipt Date: 20120820
  Transmission Date: 20120928
  Serious: Yes (Other)
  Sender: FDA-Public Use
  Company Number: PHHY2012GB072290

PATIENT
  Age: 32 Year
  Sex: Female

DRUGS (3)
  1. DIHYDROCODEINE BITARTRATE INJ [Suspect]
     Indication: PAIN
     Dosage: 2 DF, PER DAY
     Route: 048
     Dates: start: 20100315
  2. OMEPRAZOLE [Suspect]
     Indication: DYSPEPSIA
     Dosage: 1 DF, DAILY
     Route: 048
     Dates: start: 20080919
  3. PROPRANOLOL [Suspect]
     Indication: PALPITATIONS
     Dosage: 10 MG, BID
     Route: 048
     Dates: start: 20090505

REACTIONS (2)
  - ABORTION SPONTANEOUS [None]
  - MATERNAL EXPOSURE DURING PREGNANCY [None]
